FAERS Safety Report 14228570 (Version 1)
Quarter: 2017Q4

REPORT INFORMATION
  Report Type: Spontaneous
  Country: US (occurrence: US)
  Receive Date: 20171128
  Receipt Date: 20171128
  Transmission Date: 20180321
  Serious: Yes (Other)
  Sender: FDA-Public Use
  Company Number: US-009507513-1711USA009014

PATIENT
  Age: 73 Year
  Sex: Male

DRUGS (3)
  1. NORTHERA [Suspect]
     Active Substance: DROXIDOPA
     Indication: PARKINSON^S DISEASE
     Dosage: 100 MG, TID, SCHEDULE A AND TITRATING
     Route: 048
     Dates: start: 20171013
  2. CARBIDOPA (+) LEVODOPA [Suspect]
     Active Substance: CARBIDOPA\LEVODOPA
     Dosage: UNK
     Route: 048
  3. NORTHERA [Suspect]
     Active Substance: DROXIDOPA
     Indication: ORTHOSTATIC HYPOTENSION
     Dosage: 1800 MG, QD, SCHEDULE A AND TITRATING
     Route: 048

REACTIONS (9)
  - Fall [Unknown]
  - Hypersomnia [Unknown]
  - Blood pressure decreased [Unknown]
  - Altered state of consciousness [Unknown]
  - Muscle spasms [Unknown]
  - Feeling hot [Unknown]
  - Weight decreased [Unknown]
  - Blood pressure increased [Unknown]
  - Dizziness postural [Unknown]

NARRATIVE: CASE EVENT DATE: 2017
